FAERS Safety Report 10414545 (Version 2)
Quarter: 2014Q3

REPORT INFORMATION
  Report Type: Report from Study
  Country: US (occurrence: US)
  Receive Date: 20140828
  Receipt Date: 20140910
  Transmission Date: 20150326
  Serious: Yes (Hospitalization)
  Sender: FDA-Public Use
  Company Number: US-BIOGENIDEC-2014BI082631

PATIENT
  Age: 53 Year
  Sex: Female

DRUGS (6)
  1. TOPAMAX [Concomitant]
     Active Substance: TOPIRAMATE
  2. HUMALOG [Concomitant]
     Active Substance: INSULIN LISPRO
  3. DONEPEZIL [Concomitant]
     Active Substance: DONEPEZIL
  4. TECFIDERA [Suspect]
     Active Substance: DIMETHYL FUMARATE
     Indication: MULTIPLE SCLEROSIS
     Route: 048
     Dates: start: 20130503
  5. NEURONTIN [Concomitant]
     Active Substance: GABAPENTIN
  6. VENLAFAXINE [Concomitant]
     Active Substance: VENLAFAXINE HYDROCHLORIDE

REACTIONS (4)
  - Haemorrhage [Unknown]
  - Haematoma [Unknown]
  - Renal haemorrhage [Unknown]
  - Benign renal neoplasm [Not Recovered/Not Resolved]

NARRATIVE: CASE EVENT DATE: 20140623
